FAERS Safety Report 13398687 (Version 3)
Quarter: 2018Q1

REPORT INFORMATION
  Report Type: Report from Study
  Country: US (occurrence: US)
  Receive Date: 20170403
  Receipt Date: 20180224
  Transmission Date: 20180508
  Serious: No
  Sender: FDA-Public Use
  Company Number: PHEH2017US008652

PATIENT
  Age: 44 Year
  Sex: Female

DRUGS (1)
  1. COSENTYX [Suspect]
     Active Substance: SECUKINUMAB
     Indication: PSORIASIS
     Dosage: 300 MG, QW
     Route: 058
     Dates: start: 20170316

REACTIONS (3)
  - Influenza [Recovered/Resolved]
  - Nasopharyngitis [Recovered/Resolved]
  - Drug effect incomplete [Unknown]

NARRATIVE: CASE EVENT DATE: 20170324
